FAERS Safety Report 20645042 (Version 4)
Quarter: 2022Q3

REPORT INFORMATION
  Report Type: Report from Study
  Country: ES (occurrence: ES)
  Receive Date: 20220328
  Receipt Date: 20220816
  Transmission Date: 20221026
  Serious: Yes (Hospitalization)
  Sender: FDA-Public Use
  Company Number: ES-NOVARTISPH-NVSC2022ES067385

PATIENT
  Age: 75 Year
  Sex: Female
  Weight: 77.5 kg

DRUGS (9)
  1. RIBOCICLIB [Suspect]
     Active Substance: RIBOCICLIB
     Indication: Breast cancer
     Dosage: 400 MG (2 TABLETS ONCE DAILY), D1-21 EACH FOR 28 DAYS
     Route: 048
     Dates: start: 20200116, end: 20220323
  2. ANASTROZOLE [Suspect]
     Active Substance: ANASTROZOLE
     Indication: Breast cancer
     Dosage: 1 MG, QD
     Route: 048
     Dates: start: 20200116, end: 20220323
  3. ANASTROZOLE [Suspect]
     Active Substance: ANASTROZOLE
     Dosage: UNK
     Route: 048
     Dates: start: 20220505
  4. GABAPENTIN [Concomitant]
     Active Substance: GABAPENTIN
     Indication: Trigeminal neuralgia
     Dosage: 75 MG, Q12H
     Route: 048
     Dates: start: 2015, end: 20220322
  5. AMLODIPINE [Concomitant]
     Active Substance: AMLODIPINE BESYLATE
     Indication: Hypertension
     Dosage: 5 MG, QD
     Route: 048
     Dates: start: 2015, end: 20220322
  6. CEFIXIME [Concomitant]
     Active Substance: CEFIXIME
     Indication: Pruritus
     Dosage: 10 MG, QD
     Route: 048
     Dates: start: 20200618, end: 20220322
  7. TRILEPTAL [Concomitant]
     Active Substance: OXCARBAZEPINE
     Indication: Trigeminal neuralgia
     Dosage: 150 MG, Q12H
     Route: 048
     Dates: start: 20210727, end: 20220322
  8. METRONIDAZOLE [Concomitant]
     Active Substance: METRONIDAZOLE
     Indication: Prophylaxis
     Dosage: 1000/8800 UT PER DAY
     Route: 048
     Dates: start: 20201203, end: 20220322
  9. DENOSUMAB [Concomitant]
     Active Substance: DENOSUMAB
     Indication: Prophylaxis
     Dosage: 60 MG, EVERY 6 MONTHS
     Route: 065
     Dates: start: 20201203, end: 20220322

REACTIONS (1)
  - Pulmonary embolism [Recovered/Resolved with Sequelae]

NARRATIVE: CASE EVENT DATE: 20220322
